FAERS Safety Report 10483330 (Version 2)
Quarter: 2014Q4

REPORT INFORMATION
  Report Type: Spontaneous
  Country: AU (occurrence: AU)
  Receive Date: 20140930
  Receipt Date: 20141010
  Transmission Date: 20150528
  Serious: Yes (Death)
  Sender: FDA-Public Use
  Company Number: AU-MERCK-1409AUS014206

PATIENT
  Age: 65 Year
  Sex: Male

DRUGS (1)
  1. NOXAFIL [Suspect]
     Active Substance: POSACONAZOLE
     Dosage: UNK
     Route: 042

REACTIONS (1)
  - Death [Fatal]
